FAERS Safety Report 20543444 (Version 2)
Quarter: 2022Q2

REPORT INFORMATION
  Report Type: Spontaneous
  Country: DE (occurrence: DE)
  Receive Date: 20220302
  Receipt Date: 20220524
  Transmission Date: 20220721
  Serious: Yes (Hospitalization, Other)
  Sender: FDA-Public Use
  Company Number: DE-BRISTOL-MYERS SQUIBB COMPANY-BMS-2022-017800

PATIENT
  Age: 35 Year
  Sex: Male
  Weight: 85 kg

DRUGS (14)
  1. OPDIVO [Suspect]
     Active Substance: NIVOLUMAB
     Indication: Malignant melanoma
     Dosage: DOSE : NIVO 1MG/KG, IPI 3 MG/KG;     FREQ : EVERY 3 WEEKS
     Route: 065
     Dates: start: 20211227
  2. OPDIVO [Suspect]
     Active Substance: NIVOLUMAB
     Indication: Metastatic malignant melanoma
     Dosage: 1 MILLIGRAM/KILOGRAM 1 CYCLE
     Route: 042
     Dates: start: 20211128
  3. OPDIVO [Suspect]
     Active Substance: NIVOLUMAB
     Dosage: 2 CYCLE
     Route: 065
     Dates: start: 20220118, end: 20220208
  4. OPDIVO [Suspect]
     Active Substance: NIVOLUMAB
     Route: 065
     Dates: start: 20211215
  5. OPDIVO [Suspect]
     Active Substance: NIVOLUMAB
     Dosage: 1. CYCLE NIVOLUMAB MONO
     Dates: start: 20220315
  6. OPDIVO [Suspect]
     Active Substance: NIVOLUMAB
     Dosage: 2ND CYCLE NIVOLUMAB MONO
     Dates: start: 20220329
  7. OPDIVO [Suspect]
     Active Substance: NIVOLUMAB
     Dosage: 3RD CYCLE NIVOLUMAB MONOTHERAPY
     Dates: start: 20220413
  8. OPDIVO [Suspect]
     Active Substance: NIVOLUMAB
     Dosage: 4TH CYCLE NIVOLUMAB MONOTHERAPY
     Dates: start: 20220427
  9. YERVOY [Suspect]
     Active Substance: IPILIMUMAB
     Indication: Metastatic malignant melanoma
     Route: 065
     Dates: start: 20211215
  10. YERVOY [Suspect]
     Active Substance: IPILIMUMAB
     Dosage: 3 MILLIGRAM/KILOGRAM, 1 CYCLE
     Route: 042
     Dates: start: 20211128
  11. YERVOY [Suspect]
     Active Substance: IPILIMUMAB
     Dosage: 2 CYCLE
     Route: 065
     Dates: start: 20220118
  12. DENOSUMAB [Concomitant]
     Active Substance: DENOSUMAB
     Indication: Bone disorder
  13. CALCIUM\VITAMIN D [Concomitant]
     Active Substance: CALCIUM\VITAMIN D
     Indication: Bone disorder
  14. ALBUTEROL [Concomitant]
     Active Substance: ALBUTEROL
     Indication: Pulmonary function test

REACTIONS (7)
  - Chills [Recovering/Resolving]
  - Nausea [Recovering/Resolving]
  - Vomiting [Recovering/Resolving]
  - Diarrhoea [Recovering/Resolving]
  - Immune-mediated enterocolitis [Recovering/Resolving]
  - Immune-mediated lung disease [Unknown]
  - Gastroenteritis [Recovering/Resolving]

NARRATIVE: CASE EVENT DATE: 20220108
